FAERS Safety Report 11843824 (Version 1)
Quarter: 2015Q4

REPORT INFORMATION
  Report Type: Spontaneous
  Country: DE (occurrence: DE)
  Receive Date: 20151217
  Receipt Date: 20151217
  Transmission Date: 20160305
  Serious: Yes (Other)
  Sender: FDA-Public Use
  Company Number: DE-TEVA-618539GER

PATIENT

DRUGS (3)
  1. CYCLOPHOSPHAMIDE. [Suspect]
     Active Substance: CYCLOPHOSPHAMIDE
     Indication: PHAEOCHROMOCYTOMA MALIGNANT
     Dosage: 750 MG/M2 ON DAY 1; REPEATED EVERY 21 DAYS
     Route: 042
  2. VINCRISTINE [Suspect]
     Active Substance: VINCRISTINE
     Indication: PHAEOCHROMOCYTOMA MALIGNANT
     Dosage: 600 MG/M2 ON DAY 1; REPEATED EVERY 21 DAYS
     Route: 042
  3. DACARBAZINE. [Suspect]
     Active Substance: DACARBAZINE
     Indication: PHAEOCHROMOCYTOMA MALIGNANT
     Dosage: 600 MG/M2 ON DAY 1 AND DAY 2; REPEATED EVERY 21 DAYS
     Route: 042

REACTIONS (3)
  - Renal impairment [Unknown]
  - Infection [Unknown]
  - Pancytopenia [Unknown]
